FAERS Safety Report 12789045 (Version 1)
Quarter: 2016Q3

REPORT INFORMATION
  Report Type: Spontaneous
  Country: US (occurrence: US)
  Receive Date: 20160928
  Receipt Date: 20160928
  Transmission Date: 20161109
  Serious: Yes (Hospitalization, Other)
  Sender: FDA-Public Use
  Company Number: US-SAOL THERAPEUTICS-2016SAO00723

PATIENT
  Sex: Male

DRUGS (4)
  1. BACLOFEN. [Suspect]
     Active Substance: BACLOFEN
     Indication: MULTIPLE SCLEROSIS
     Dosage: 140 ?G, \DAY
     Route: 037
  2. BACLOFEN. [Suspect]
     Active Substance: BACLOFEN
     Indication: MUSCLE SPASTICITY
     Dosage: UNK
     Route: 037
  3. MORPHINE [Suspect]
     Active Substance: MORPHINE
     Dosage: UNK
     Route: 037
  4. MORPHINE [Suspect]
     Active Substance: MORPHINE
     Dosage: 270 ?G, \DAY
     Route: 037

REACTIONS (11)
  - Feeling abnormal [Unknown]
  - Restlessness [Unknown]
  - Medical device discomfort [Unknown]
  - Device malfunction [Unknown]
  - Dyspnoea [Unknown]
  - Loss of consciousness [Unknown]
  - Skin discolouration [Unknown]
  - Dyskinesia [Unknown]
  - Drug withdrawal syndrome [Unknown]
  - Speech disorder [Unknown]
  - Unevaluable event [Unknown]

NARRATIVE: CASE EVENT DATE: 201604
